FAERS Safety Report 11019488 (Version 2)
Quarter: 2015Q2

REPORT INFORMATION
  Report Type: Spontaneous
  Country: US (occurrence: US)
  Receive Date: 20150412
  Receipt Date: 20150525
  Transmission Date: 20150821
  Serious: No
  Sender: FDA-Public Use
  Company Number: US-JNJFOC-20130916846

PATIENT

DRUGS (6)
  1. AZITHROMYCIN [Suspect]
     Active Substance: AZITHROMYCIN ANHYDROUS
     Indication: CUTANEOUS SARCOIDOSIS
     Route: 065
  2. AZITHROMYCIN [Suspect]
     Active Substance: AZITHROMYCIN ANHYDROUS
     Indication: CUTANEOUS SARCOIDOSIS
     Dosage: ONE DAY 1
     Route: 065
  3. LEVAQUIN [Suspect]
     Active Substance: LEVOFLOXACIN
     Indication: CUTANEOUS SARCOIDOSIS
     Route: 065
  4. ETHAMBUTOL [Suspect]
     Active Substance: ETHAMBUTOL HYDROCHLORIDE
     Indication: CUTANEOUS SARCOIDOSIS
     Dosage: UPTO A MAXIMUM DOSAGE OF 1200 MG PER DAY
     Route: 065
  5. RIFAMPIN. [Suspect]
     Active Substance: RIFAMPIN
     Indication: CUTANEOUS SARCOIDOSIS
     Dosage: 10MG/KG/DAY UPTOA MAXIMUM DOSAGE OF 300 MG/DAY
     Route: 065
  6. LEVAQUIN [Suspect]
     Active Substance: LEVOFLOXACIN
     Indication: CUTANEOUS SARCOIDOSIS
     Dosage: DAY 1
     Route: 065

REACTIONS (1)
  - Arthralgia [Unknown]
